FAERS Safety Report 15679189 (Version 1)
Quarter: 2018Q4

REPORT INFORMATION
  Report Type: Spontaneous
  Country: US (occurrence: US)
  Receive Date: 20181203
  Receipt Date: 20181203
  Transmission Date: 20190205
  Serious: No
  Sender: FDA-Public Use
  Company Number: US-PRINSTON PHARMACEUTICAL INC.-2018PRN00693

PATIENT
  Sex: Female

DRUGS (1)
  1. VALSARTAN AND HYDROCHLOROTHIAZIDE [Suspect]
     Active Substance: HYDROCHLOROTHIAZIDE\VALSARTAN
     Dosage: 1 TABLETS
     Dates: start: 20180701

REACTIONS (10)
  - Abdominal discomfort [Unknown]
  - Asthenia [Unknown]
  - Blood pressure fluctuation [Unknown]
  - Chest discomfort [Unknown]
  - Vomiting [Unknown]
  - Heart rate increased [Unknown]
  - Malaise [Unknown]
  - Dizziness [Unknown]
  - Dyspepsia [Unknown]
  - Skin burning sensation [Unknown]
